FAERS Safety Report 5710844-1 (Version None)
Quarter: 2008Q2

REPORT INFORMATION
  Report Type: 
  Country: None (occurrence: None)
  Receive Date: 20080417
  Receipt Date: 20080417
  Transmission Date: 20081010
  Serious: Yes (Disabling)
  Sender: FDA-Public Use
  Company Number: None

PATIENT
  Age: 51 Year
  Sex: Female
  Weight: 73.4827 kg

DRUGS (1)
  1. EPIPEN [Suspect]
     Indication: FOOD ALLERGY
     Dates: start: 20080415, end: 20080415

REACTIONS (2)
  - ACCIDENTAL NEEDLE STICK [None]
  - WRONG TECHNIQUE IN DRUG USAGE PROCESS [None]
